FAERS Safety Report 19496111 (Version 1)
Quarter: 2021Q3

REPORT INFORMATION
  Report Type: Spontaneous
  Country: US (occurrence: US)
  Receive Date: 20210701
  Receipt Date: 20210701
  Transmission Date: 20211014
  Serious: No
  Sender: FDA-Public Use
  Company Number: None

PATIENT
  Age: 82 Year
  Sex: Male
  Weight: 107 kg

DRUGS (22)
  1. CAPECITABINE TABLET [Suspect]
     Active Substance: CAPECITABINE
     Indication: RECTAL CANCER
     Route: 048
     Dates: start: 20210518
  2. LOSARTAN. [Concomitant]
     Active Substance: LOSARTAN
  3. ASPIRIN. [Concomitant]
     Active Substance: ASPIRIN
  4. COLLAGENASE SANTYL [Concomitant]
     Active Substance: COLLAGENASE CLOSTRIDIUM HISTOLYTICUM
  5. COREG [Concomitant]
     Active Substance: CARVEDILOL
  6. VITAMIN B12 [Concomitant]
     Active Substance: CYANOCOBALAMIN
  7. GLIPIZIDE. [Concomitant]
     Active Substance: GLIPIZIDE
  8. NITROSTAT [Concomitant]
     Active Substance: NITROGLYCERIN
  9. ACETAMINOPHEN. [Concomitant]
     Active Substance: ACETAMINOPHEN
  10. ALBUTEROL SULFATE HFA [Concomitant]
     Active Substance: ALBUTEROL SULFATE
  11. OMEPRAZOLE. [Concomitant]
     Active Substance: OMEPRAZOLE
  12. FISH OIL [Concomitant]
     Active Substance: FISH OIL
  13. CENTRUM SILVER [Concomitant]
     Active Substance: MINERALS\VITAMINS
  14. VOLTAREN [Concomitant]
     Active Substance: DICLOFENAC SODIUM
  15. FOLIC ACID. [Concomitant]
     Active Substance: FOLIC ACID
  16. LASIX [Concomitant]
     Active Substance: FUROSEMIDE
  17. NOVOLOG [Concomitant]
     Active Substance: INSULIN ASPART
  18. ZOLOFT [Concomitant]
     Active Substance: SERTRALINE HYDROCHLORIDE
  19. NORVASC [Concomitant]
     Active Substance: AMLODIPINE BESYLATE
  20. ATORVASTATIN [Concomitant]
     Active Substance: ATORVASTATIN
  21. DIPHENHYDRAMINE. [Concomitant]
     Active Substance: DIPHENHYDRAMINE
  22. HYDROCORTISONE. [Concomitant]
     Active Substance: HYDROCORTISONE

REACTIONS (3)
  - Skin ulcer [None]
  - Therapy interrupted [None]
  - Bacteraemia [None]

NARRATIVE: CASE EVENT DATE: 20210701
